FAERS Safety Report 17422535 (Version 2)
Quarter: 2020Q1

REPORT INFORMATION
  Report Type: Report from Study
  Country: FR (occurrence: FR)
  Receive Date: 20200215
  Receipt Date: 20200224
  Transmission Date: 20200409
  Serious: Yes (Other)
  Sender: FDA-Public Use
  Company Number: FR-ROCHE-2549716

PATIENT

DRUGS (2)
  1. RITUXIMAB. [Suspect]
     Active Substance: RITUXIMAB
     Indication: NEUROMYELITIS OPTICA SPECTRUM DISORDER
     Dosage: INDUCTION: TWICE AT A 2-WEEK INTERVAL
     Route: 042
  2. RITUXIMAB. [Suspect]
     Active Substance: RITUXIMAB
     Dosage: MAINTENANCE: SINGLE INFUSION
     Route: 041

REACTIONS (4)
  - Pyelonephritis [Unknown]
  - Off label use [Unknown]
  - Intentional product use issue [Unknown]
  - Pneumonia [Unknown]
